FAERS Safety Report 23357580 (Version 3)
Quarter: 2024Q1

REPORT INFORMATION
  Report Type: Spontaneous
  Country: CN (occurrence: CN)
  Receive Date: 20240102
  Receipt Date: 20240111
  Transmission Date: 20240409
  Serious: Yes (Hospitalization)
  Sender: FDA-Public Use
  Company Number: CN-002147023-NVSC2023CN276088

PATIENT
  Age: 68 Year
  Sex: Male
  Weight: 70 kg

DRUGS (4)
  1. OXCARBAZEPINE [Suspect]
     Active Substance: OXCARBAZEPINE
     Indication: Epilepsy
     Dosage: 150 MG, BID
     Route: 048
     Dates: start: 20231129, end: 20231201
  2. OXCARBAZEPINE [Suspect]
     Active Substance: OXCARBAZEPINE
     Dosage: 300.000 MG, BID
     Route: 048
     Dates: start: 20231201, end: 20231213
  3. OXCARBAZEPINE [Suspect]
     Active Substance: OXCARBAZEPINE
     Dosage: 150 MG, BID
     Route: 048
     Dates: start: 20231214, end: 20231216
  4. LEVETIRACETAM [Concomitant]
     Active Substance: LEVETIRACETAM
     Indication: Epilepsy
     Dosage: 0.75 G, BID
     Route: 065
     Dates: start: 20231129, end: 20231213

REACTIONS (2)
  - Hyponatraemia [Recovering/Resolving]
  - Epilepsy [Unknown]

NARRATIVE: CASE EVENT DATE: 20231212
